FAERS Safety Report 17022837 (Version 1)
Quarter: 2019Q4

REPORT INFORMATION
  Report Type: Spontaneous
  Country: CH (occurrence: CH)
  Receive Date: 20191112
  Receipt Date: 20191112
  Transmission Date: 20200122
  Serious: Yes (Death)
  Sender: FDA-Public Use
  Company Number: CH-EISAI MEDICAL RESEARCH-EC-2019-065115

PATIENT
  Age: 59 Year

DRUGS (1)
  1. LENVIMA [Suspect]
     Active Substance: LENVATINIB
     Indication: ADENOID CYSTIC CARCINOMA OF SALIVARY GLAND
     Route: 048
     Dates: start: 201902

REACTIONS (3)
  - Death [Fatal]
  - Thrombocytopenia [Unknown]
  - Product use in unapproved indication [Fatal]

NARRATIVE: CASE EVENT DATE: 2019
